FAERS Safety Report 7820284-7 (Version None)
Quarter: 2011Q4

REPORT INFORMATION
  Report Type: 
  Country: None (occurrence: None)
  Receive Date: 20111018
  Receipt Date: 20111010
  Transmission Date: 20120403
  Serious: Yes (Other)
  Sender: FDA-Public Use
  Company Number: US-AMGEN-USASP2011000433

PATIENT
  Age: 56 Year
  Sex: Female

DRUGS (2)
  1. ENBREL [Suspect]
     Indication: PSORIATIC ARTHROPATHY
     Dosage: 50 MG, QWK
     Dates: start: 20101201, end: 20110101
  2. ENBREL [Suspect]
     Dosage: 50 MG, QWK
     Dates: start: 20101215

REACTIONS (5)
  - NAUSEA [None]
  - AURICULAR SWELLING [None]
  - HEPATITIS [None]
  - MYALGIA [None]
  - LOCALISED INFECTION [None]
